FAERS Safety Report 18384264 (Version 1)
Quarter: 2020Q4

REPORT INFORMATION
  Report Type: Spontaneous
  Country: FR (occurrence: FR)
  Receive Date: 20201015
  Receipt Date: 20201015
  Transmission Date: 20210114
  Serious: Yes (Hospitalization)
  Sender: FDA-Public Use
  Company Number: NVSC2020FR271579

PATIENT
  Age: 51 Year
  Sex: Male

DRUGS (8)
  1. OMEPRAZOLE. [Suspect]
     Active Substance: OMEPRAZOLE
     Indication: POISONING DELIBERATE
     Dosage: 28 DF(TOTAL)
     Route: 048
     Dates: start: 20200724, end: 20200724
  2. BUSPIRONE [Suspect]
     Active Substance: BUSPIRONE HYDROCHLORIDE
     Indication: POISONING DELIBERATE
     Dosage: 40 DF (TOTAL)
     Route: 048
     Dates: start: 20200724, end: 20200724
  3. KARDEGIC [Suspect]
     Active Substance: ASPIRIN DL-LYSINE
     Indication: POISONING DELIBERATE
     Dosage: 30 DF (TOTAL)
     Route: 048
     Dates: start: 20200724, end: 20200724
  4. LOXAPAC [Suspect]
     Active Substance: LOXAPINE
     Indication: POISONING DELIBERATE
     Dosage: 60 DF (TOTAL)
     Route: 048
     Dates: start: 20200724, end: 20200724
  5. ALPRAZOLAM. [Suspect]
     Active Substance: ALPRAZOLAM
     Indication: POISONING DELIBERATE
     Dosage: 60 DF (TOTAL)
     Route: 048
     Dates: start: 20200724, end: 20200724
  6. ESCITALOPRAM [Suspect]
     Active Substance: ESCITALOPRAM OXALATE
     Indication: POISONING DELIBERATE
     Dosage: 28 DF (TOTAL)
     Route: 048
     Dates: start: 20200724, end: 20200724
  7. LEPTICUR [Suspect]
     Active Substance: TROPATEPINE HYDROCHLORIDE
     Indication: POISONING DELIBERATE
     Dosage: 30 DF (TOTAL)
     Route: 048
     Dates: start: 20200724, end: 20200724
  8. ARIPIPRAZOLE. [Suspect]
     Active Substance: ARIPIPRAZOLE
     Indication: POISONING DELIBERATE
     Dosage: 224 DF (TOTAL)
     Route: 048
     Dates: start: 20200724, end: 20200724

REACTIONS (4)
  - Coma [Recovered/Resolved]
  - Atrioventricular block second degree [Recovered/Resolved]
  - Electrocardiogram QT prolonged [Recovered/Resolved]
  - Supraventricular tachycardia [Recovered/Resolved]

NARRATIVE: CASE EVENT DATE: 20200724
